FAERS Safety Report 12424154 (Version 1)
Quarter: 2016Q2

REPORT INFORMATION
  Report Type: Spontaneous
  Country: US (occurrence: US)
  Receive Date: 20160601
  Receipt Date: 20160601
  Transmission Date: 20160815
  Serious: No
  Sender: FDA-Public Use
  Company Number: US-NOVEN PHARMACEUTICALS, INC.-US2015001045

PATIENT
  Age: 56 Year
  Sex: Female

DRUGS (21)
  1. LEXAPRO [Concomitant]
     Active Substance: ESCITALOPRAM OXALATE
  2. PROPYLTHIOURACIL. [Concomitant]
     Active Substance: PROPYLTHIOURACIL
  3. NEXIUM [Concomitant]
     Active Substance: ESOMEPRAZOLE MAGNESIUM
  4. SYMBICORT [Concomitant]
     Active Substance: BUDESONIDE\FORMOTEROL FUMARATE DIHYDRATE
  5. DOMPERIDONE [Concomitant]
     Active Substance: DOMPERIDONE
  6. AMITIZA [Concomitant]
     Active Substance: LUBIPROSTONE
  7. DIVALPROEX SODIUM. [Concomitant]
     Active Substance: DIVALPROEX SODIUM
  8. METFORMIN [Concomitant]
     Active Substance: METFORMIN HYDROCHLORIDE
  9. ERYTHROMYCIN. [Concomitant]
     Active Substance: ERYTHROMYCIN
  10. DULOXETINE. [Concomitant]
     Active Substance: DULOXETINE
  11. XIFAXAN [Concomitant]
     Active Substance: RIFAXIMIN
  12. PATADAY [Concomitant]
     Active Substance: OLOPATADINE HYDROCHLORIDE
  13. DAYTRANA [Suspect]
     Active Substance: METHYLPHENIDATE
     Indication: ATTENTION DEFICIT/HYPERACTIVITY DISORDER
     Dosage: 30 MG, UNKNOWN
     Route: 062
     Dates: start: 2003
  14. QNASL [Concomitant]
     Active Substance: BECLOMETHASONE DIPROPIONATE
  15. GABAPENTIN. [Concomitant]
     Active Substance: GABAPENTIN
  16. PROBIOTICS [Concomitant]
     Active Substance: PROBIOTICS NOS
  17. QSYMIA [Concomitant]
     Active Substance: PHENTERMINE HYDROCHLORIDE\TOPIRAMATE
  18. CLOZAPINE. [Concomitant]
     Active Substance: CLOZAPINE
  19. TURMERIC [Concomitant]
     Active Substance: TURMERIC
  20. TRAZODONE HYDROCHLORIDE. [Concomitant]
     Active Substance: TRAZODONE HYDROCHLORIDE
  21. PROAIR HFA [Concomitant]
     Active Substance: ALBUTEROL SULFATE

REACTIONS (2)
  - No adverse event [Unknown]
  - Off label use [Not Recovered/Not Resolved]

NARRATIVE: CASE EVENT DATE: 2003
